FAERS Safety Report 9204941 (Version 1)
Quarter: 2013Q2

REPORT INFORMATION
  Report Type: Spontaneous
  Country: US (occurrence: US)
  Receive Date: 20130402
  Receipt Date: 20130402
  Transmission Date: 20140414
  Serious: Yes (Hospitalization, Disabling, Other)
  Sender: FDA-Public Use
  Company Number: US-009507513-0812USA00489

PATIENT
  Sex: Male

DRUGS (7)
  1. FOSAMAX [Suspect]
     Indication: OSTEOPOROSIS
     Dosage: 70 MG, QW
     Route: 048
     Dates: start: 2002, end: 20071121
  2. PRINIVIL [Concomitant]
     Indication: HYPERTENSION
     Dates: start: 1970
  3. MK-0805 [Concomitant]
     Indication: POLYURIA
     Dates: start: 2001
  4. ARICEPT [Concomitant]
     Indication: DEMENTIA ALZHEIMER^S TYPE
     Dates: start: 2002
  5. ZOCOR [Concomitant]
     Indication: HYPERCHOLESTEROLAEMIA
     Route: 048
     Dates: start: 1970
  6. CITALOPRAM RL [Concomitant]
     Indication: DEPRESSION
     Dates: start: 2002
  7. PLAVIX [Concomitant]
     Indication: ANTICOAGULANT THERAPY

REACTIONS (11)
  - Coronary artery disease [Unknown]
  - Blood pressure decreased [Unknown]
  - Adverse drug reaction [Unknown]
  - Osteonecrosis of jaw [Not Recovered/Not Resolved]
  - Glaucoma [Unknown]
  - Exostosis [Unknown]
  - Exostosis [Unknown]
  - Trismus [Unknown]
  - Macular fibrosis [Unknown]
  - Retinal oedema [Unknown]
  - Pain in jaw [Not Recovered/Not Resolved]
